FAERS Safety Report 24531609 (Version 1)
Quarter: 2024Q4

REPORT INFORMATION
  Report Type: Report from Study
  Country: US (occurrence: US)
  Receive Date: 20241022
  Receipt Date: 20241022
  Transmission Date: 20250115
  Serious: No
  Sender: ROCHE
  Company Number: US-ROCHE-3434760

PATIENT

DRUGS (1)
  1. DORNASE ALFA [Suspect]
     Active Substance: DORNASE ALFA
     Indication: Pleural infection
     Dosage: VIA CLAMPED CHEST TUBE FOR 1 HOUR, EVERY 12 HOURS FOR 6 DOSES OR UNTIL EFFUSION RESOLUTION.
     Route: 034

REACTIONS (1)
  - Haemorrhage [Unknown]
